FAERS Safety Report 5577884-7 (Version None)
Quarter: 2007Q4

REPORT INFORMATION
  Report Type: 
  Country: None (occurrence: None)
  Receive Date: 20071130
  Receipt Date: 20070626
  Transmission Date: 20080405
  Serious: No
  Sender: FDA-Public Use
  Company Number: US200707000675

PATIENT
  Age: 63 Year
  Sex: Male

DRUGS (4)
  1. BYETTA [Suspect]
     Indication: TYPE 2 DIABETES MELLITUS
     Dosage: 5 UG, 2/D, SUBCUTANEOUS : 10 UG, 2/D, SUBCUTANEOUS
     Route: 058
     Dates: start: 20061101, end: 20070609
  2. BYETTA [Suspect]
     Indication: TYPE 2 DIABETES MELLITUS
     Dosage: 5 UG, 2/D, SUBCUTANEOUS : 10 UG, 2/D, SUBCUTANEOUS
     Route: 058
     Dates: start: 20070610
  3. METFORMIN HCL [Concomitant]
  4. LANTUS [Concomitant]

REACTIONS (5)
  - BLOOD GLUCOSE INCREASED [None]
  - CONTUSION [None]
  - HAEMATOMA [None]
  - INJECTION SITE EXTRAVASATION [None]
  - INJECTION SITE HAEMORRHAGE [None]
